FAERS Safety Report 10027980 (Version 1)
Quarter: 2014Q1

REPORT INFORMATION
  Report Type: Spontaneous
  Country: US (occurrence: None)
  Receive Date: 20140227
  Receipt Date: 20140227
  Transmission Date: 20141002
  Serious: Yes (Hospitalization)
  Sender: FDA-Public Use
  Company Number: UTC-044441

PATIENT
  Age: 88 Year
  Sex: Female
  Weight: 59.1 kg

DRUGS (5)
  1. REMODULIN [Suspect]
     Indication: COR PULMONALE CHRONIC
     Dosage: 41.76 UG/KG (0.029 UG/KG, 1 IN 1 MIN), INTRVAVENOUS DRIP
     Route: 041
     Dates: start: 20080917
  2. REVATO (SILDENAFIL CITRATE) (UNKNOWN) [Concomitant]
  3. WARFARIN (UNKNOWN) [Concomitant]
  4. FLOLAN (EPOPROSTENOL) (UNKNOWN) [Concomitant]
  5. LETAIRIS (AMBRISENTAN) (UNKNOWN) [Concomitant]

REACTIONS (3)
  - Urinary tract infection [None]
  - Staphylococcal bacteraemia [None]
  - Weight decreased [None]
